FAERS Safety Report 10272771 (Version 1)
Quarter: 2014Q2

REPORT INFORMATION
  Report Type: Spontaneous
  Country: US (occurrence: None)
  Receive Date: 20140630
  Receipt Date: 20140630
  Transmission Date: 20141212
  Serious: Yes (Other)
  Sender: FDA-Public Use
  Company Number: None

PATIENT
  Age: 36 Year
  Sex: Male
  Weight: 93.9 kg

DRUGS (8)
  1. DULOXETINE [Suspect]
     Indication: DEPRESSION
     Dosage: 60 MG, 1 CAPSULES  TWICE A DAILY, ORALLY
     Route: 048
     Dates: start: 20140220, end: 20140502
  2. ASA [Concomitant]
  3. LIPITOR [Concomitant]
  4. CYMBALTA [Concomitant]
  5. GLIMEPERIDE [Concomitant]
  6. NPH INSULIN [Concomitant]
  7. LISINOPRIL [Concomitant]
  8. METFORMIN [Concomitant]

REACTIONS (2)
  - Depression [None]
  - Malaise [None]
